FAERS Safety Report 21993187 (Version 1)
Quarter: 2023Q1

REPORT INFORMATION
  Report Type: Spontaneous
  Country: US (occurrence: US)
  Receive Date: 20230215
  Receipt Date: 20230215
  Transmission Date: 20230417
  Serious: No
  Sender: FDA-Public Use
  Company Number: US-PERRIGO-22US002598

PATIENT
  Age: 75 Year
  Sex: Male
  Weight: 74.83 kg

DRUGS (6)
  1. OMEPRAZOLE [Suspect]
     Active Substance: OMEPRAZOLE
     Indication: Eosinophilic fasciitis
     Dosage: 20 MG, QD
     Route: 048
     Dates: start: 202011
  2. ALENDRONATE [Concomitant]
     Active Substance: ALENDRONATE SODIUM
     Indication: Osteoporosis
     Dosage: UNK
     Route: 065
     Dates: start: 202110
  3. FOLIC ACID [Concomitant]
     Active Substance: FOLIC ACID
     Indication: Eosinophilic fasciitis
     Dosage: UNK
     Route: 065
     Dates: start: 202011
  4. METHOTREXATE [Concomitant]
     Active Substance: METHOTREXATE
     Indication: Eosinophilic fasciitis
     Dosage: WEEKLY
     Route: 065
     Dates: start: 202011
  5. PREDNISONE [Concomitant]
     Active Substance: PREDNISONE
     Indication: Eosinophilic fasciitis
     Dosage: UNK
     Route: 065
     Dates: start: 202012
  6. VITAMIN D NOS [Concomitant]
     Active Substance: VITAMIN D NOS
     Indication: Eosinophilic fasciitis
     Dosage: UNK
     Route: 065
     Dates: start: 202011

REACTIONS (4)
  - Weight decreased [Unknown]
  - Faeces soft [Unknown]
  - Incorrect product administration duration [Unknown]
  - Off label use [Unknown]

NARRATIVE: CASE EVENT DATE: 20201101
